FAERS Safety Report 23059931 (Version 1)
Quarter: 2023Q4

REPORT INFORMATION
  Report Type: Spontaneous
  Country: US (occurrence: US)
  Receive Date: 20231012
  Receipt Date: 20231012
  Transmission Date: 20240110
  Serious: Yes (Hospitalization, Other)
  Sender: FDA-Public Use
  Company Number: US-009507513-2310USA003331

PATIENT
  Age: 78 Year
  Sex: Male

DRUGS (1)
  1. CUBICIN [Suspect]
     Active Substance: DAPTOMYCIN
     Indication: Enterococcal infection
     Dosage: 6 MG/KG, DAILY

REACTIONS (3)
  - Acute respiratory distress syndrome [Recovering/Resolving]
  - Eosinophilic pneumonia [Recovering/Resolving]
  - Toxicity to various agents [Recovering/Resolving]
